FAERS Safety Report 6427839-5 (Version None)
Quarter: 2009Q4

REPORT INFORMATION
  Report Type: 
  Country: None (occurrence: None)
  Receive Date: 20091105
  Receipt Date: 20091104
  Transmission Date: 20100525
  Serious: No
  Sender: FDA-Public Use
  Company Number: US-B.I. PHARMACEUTICALS,INC./RIDGEFIELD-2007-BP-25578BP

PATIENT
  Sex: Female

DRUGS (2)
  1. ZANTAC 150 [Suspect]
     Indication: GASTROOESOPHAGEAL REFLUX DISEASE
     Dosage: 150 MG
     Route: 048
     Dates: end: 20080101
  2. MYSOLINE [Concomitant]
     Indication: CONVULSION

REACTIONS (3)
  - ABDOMINAL DISTENSION [None]
  - DYSGEUSIA [None]
  - PHARYNGEAL OEDEMA [None]
